FAERS Safety Report 20680328 (Version 1)
Quarter: 2022Q2

REPORT INFORMATION
  Report Type: Report from Study
  Country: US (occurrence: US)
  Receive Date: 20220406
  Receipt Date: 20220406
  Transmission Date: 20220721
  Serious: Yes (Other)
  Sender: FDA-Public Use
  Company Number: US-TEVA-2022-US-2012931

PATIENT
  Age: 74 Year
  Sex: Female

DRUGS (3)
  1. AUSTEDO [Suspect]
     Active Substance: DEUTETRABENAZINE
     Indication: Tardive dyskinesia
     Route: 048
     Dates: start: 20220118, end: 20220222
  2. AUSTEDO [Suspect]
     Active Substance: DEUTETRABENAZINE
     Route: 048
     Dates: start: 2022, end: 20220222
  3. MILK OF MAGNESIA [Suspect]
     Active Substance: MAGNESIUM HYDROXIDE
     Route: 065

REACTIONS (4)
  - Faecaloma [Recovered/Resolved]
  - Constipation [Recovered/Resolved]
  - Diarrhoea [Recovered/Resolved]
  - Dizziness [Unknown]

NARRATIVE: CASE EVENT DATE: 20220201
